FAERS Safety Report 16315176 (Version 1)
Quarter: 2019Q2

REPORT INFORMATION
  Report Type: Spontaneous
  Country: US (occurrence: US)
  Receive Date: 20190515
  Receipt Date: 20190515
  Transmission Date: 20190711
  Serious: No
  Sender: FDA-Public Use
  Company Number: US-ASTRAZENECA-2019SE60594

PATIENT
  Age: 63 Year
  Sex: Male

DRUGS (22)
  1. SYMBICORT [Suspect]
     Active Substance: BUDESONIDE\FORMOTEROL FUMARATE DIHYDRATE
     Route: 055
     Dates: start: 20190403
  2. BYDUREON [Suspect]
     Active Substance: EXENATIDE
     Route: 065
  3. SINGULAIR [Concomitant]
     Active Substance: MONTELUKAST SODIUM
  4. BYSTOLIC [Concomitant]
     Active Substance: NEBIVOLOL HYDROCHLORIDE
     Route: 048
  5. FASENRA [Suspect]
     Active Substance: BENRALIZUMAB
     Indication: ASTHMA
     Route: 058
  6. FASENRA [Suspect]
     Active Substance: BENRALIZUMAB
     Indication: ASTHMA
     Route: 058
     Dates: start: 20190228
  7. ASTELIN [Concomitant]
     Active Substance: AZELASTINE HYDROCHLORIDE
  8. BYSTOLIC [Concomitant]
     Active Substance: NEBIVOLOL HYDROCHLORIDE
     Route: 048
  9. DEMADEX [Concomitant]
     Active Substance: TORSEMIDE
     Route: 048
  10. FLONASE [Concomitant]
     Active Substance: FLUTICASONE PROPIONATE
     Dosage: TWO TIMES A DAY
  11. GLUCOPHAGE [Concomitant]
     Active Substance: METFORMIN HYDROCHLORIDE
     Route: 048
  12. HYDROCODONE [Concomitant]
     Active Substance: HYDROCODONE
     Dosage: 1.0DF AS REQUIRED
     Route: 048
  13. ALBUTEROL. [Concomitant]
     Active Substance: ALBUTEROL
     Indication: ASTHMA
     Dosage: 3.0ML AS REQUIRED
  14. AMLODIPINE [Concomitant]
     Active Substance: AMLODIPINE BESYLATE
     Route: 048
  15. EPIPEN [Concomitant]
     Active Substance: EPINEPHRINE
     Dosage: 0.3 ML AS NEEDED
  16. TYLENOL [Concomitant]
     Active Substance: ACETAMINOPHEN
     Indication: PAIN
  17. SPIRIVA [Concomitant]
     Active Substance: TIOTROPIUM BROMIDE MONOHYDRATE
  18. LASIX [Concomitant]
     Active Substance: FUROSEMIDE
     Route: 048
  19. ZYLOPRIM [Concomitant]
     Active Substance: ALLOPURINOL
     Dosage: 1.5 TAB DAILY
     Route: 048
  20. COREG [Concomitant]
     Active Substance: CARVEDILOL
  21. LANTUS [Concomitant]
     Active Substance: INSULIN GLARGINE
     Dosage: 1.0DF AS REQUIRED
     Route: 048
  22. NASONEX [Concomitant]
     Active Substance: MOMETASONE FUROATE
     Dosage: 2 SPRAYS TWO TIMES A DAY

REACTIONS (21)
  - Off label use [Unknown]
  - Haemorrhagic diathesis [Unknown]
  - Incorrect dose administered [Unknown]
  - Hypoaesthesia [Unknown]
  - Sinusitis [Unknown]
  - Asthma [Unknown]
  - Back pain [Unknown]
  - Headache [Unknown]
  - Nasal congestion [Unknown]
  - Rhinorrhoea [Unknown]
  - Tinnitus [Unknown]
  - Rhinitis perennial [Unknown]
  - Dermatitis allergic [Unknown]
  - Fatigue [Unknown]
  - Nasal polyps [Unknown]
  - Photophobia [Unknown]
  - Peripheral swelling [Unknown]
  - Arthralgia [Unknown]
  - Neck pain [Unknown]
  - Asthenia [Unknown]
  - Increased tendency to bruise [Unknown]
